FAERS Safety Report 7656449-7 (Version None)
Quarter: 2011Q3

REPORT INFORMATION
  Report Type: 
  Country: None (occurrence: None)
  Receive Date: 20110729
  Receipt Date: 20110603
  Transmission Date: 20111222
  Serious: No
  Sender: FDA-Public Use
  Company Number: 2011-00528

PATIENT
  Sex: Female

DRUGS (1)
  1. ZICAM COLD REMEDY PLUS ORAL MIST [Suspect]

REACTIONS (1)
  - AGEUSIA [None]
